FAERS Safety Report 6423494-9 (Version None)
Quarter: 2009Q4

REPORT INFORMATION
  Report Type: 
  Country: None (occurrence: None)
  Receive Date: 20091102
  Receipt Date: 20091020
  Transmission Date: 20100525
  Serious: Yes (Other)
  Sender: FDA-Public Use
  Company Number: FR-JNJFOC-20091100119

PATIENT
  Age: 56 Year
  Sex: Female

DRUGS (3)
  1. IXPRIM [Suspect]
     Indication: PARONYCHIA
     Dosage: 2 DOSES
     Route: 048
  2. PYOSTACINE [Suspect]
     Indication: PARONYCHIA
     Route: 048
  3. ZESTRIL [Concomitant]
     Route: 065

REACTIONS (4)
  - CHILLS [None]
  - MALAISE [None]
  - NAUSEA [None]
  - PAIN [None]
